FAERS Safety Report 23233299 (Version 1)
Quarter: 2023Q4

REPORT INFORMATION
  Report Type: Spontaneous
  Country: JP (occurrence: JP)
  Receive Date: 20231128
  Receipt Date: 20231128
  Transmission Date: 20240109
  Serious: Yes (Hospitalization, Other)
  Sender: FDA-Public Use
  Company Number: JP-AJANTA-2023AJA00256

PATIENT
  Age: 20 Year
  Sex: Female

DRUGS (9)
  1. LAMOTRIGINE [Suspect]
     Active Substance: LAMOTRIGINE
     Indication: Bipolar disorder
  2. LAMOTRIGINE [Suspect]
     Active Substance: LAMOTRIGINE
     Indication: Depressed mood
  3. LAMOTRIGINE [Suspect]
     Active Substance: LAMOTRIGINE
  4. VALPROATE [Concomitant]
     Active Substance: VALPROIC ACID
     Indication: Bipolar disorder
  5. VALPROATE [Concomitant]
     Active Substance: VALPROIC ACID
     Indication: Depressed mood
  6. LURASIDONE [Concomitant]
     Active Substance: LURASIDONE
     Indication: Bipolar disorder
  7. LURASIDONE [Concomitant]
     Active Substance: LURASIDONE
     Indication: Depressed mood
  8. QUETIAPINE [Concomitant]
     Active Substance: QUETIAPINE
     Indication: Bipolar disorder
  9. QUETIAPINE [Concomitant]
     Active Substance: QUETIAPINE
     Indication: Depressed mood

REACTIONS (2)
  - Vaccine interaction [Recovered/Resolved]
  - Leukopenia [Recovered/Resolved]
